FAERS Safety Report 7958467-8 (Version None)
Quarter: 2011Q4

REPORT INFORMATION
  Report Type: 
  Country: None (occurrence: None)
  Receive Date: 20111205
  Receipt Date: 20111129
  Transmission Date: 20120403
  Serious: Yes (Life-Threatening)
  Sender: FDA-Public Use
  Company Number: JP-ELI_LILLY_AND_COMPANY-JP201111004772

PATIENT
  Sex: Female
  Weight: 60.1 kg

DRUGS (6)
  1. AMLODIPINE [Concomitant]
     Indication: HYPERTENSION
     Dosage: 5 MG, QD
     Route: 048
     Dates: start: 20101210
  2. ASPARA-CA [Concomitant]
     Indication: OSTEOPOROSIS
     Dosage: 200 MG, UNK
     Route: 048
     Dates: start: 20101210
  3. JUVELA N [Concomitant]
     Indication: ARTERIOSCLEROSIS OBLITERANS
     Dosage: 100 MG, QD
     Route: 048
     Dates: start: 20101210
  4. EVISTA [Suspect]
     Indication: OSTEOPOROSIS
     Dosage: 60 MG, QD
     Route: 048
     Dates: start: 20110922, end: 20110929
  5. CINAL [Concomitant]
     Indication: ECZEMA
     Dosage: 1 DF, UNK
     Route: 048
     Dates: start: 20101210
  6. ONEALFA [Concomitant]
     Indication: OSTEOPOROSIS
     Dosage: 0.5 UG, QD
     Route: 048
     Dates: start: 20101210

REACTIONS (2)
  - PALPITATIONS [None]
  - CHEST PAIN [None]
